FAERS Safety Report 7967547-2 (Version None)
Quarter: 2011Q4

REPORT INFORMATION
  Report Type: 
  Country: None (occurrence: None)
  Receive Date: 20111209
  Receipt Date: 20111129
  Transmission Date: 20120403
  Serious: Yes (Death, Hospitalization)
  Sender: FDA-Public Use
  Company Number: US-JNJFOC-20060602928

PATIENT
  Sex: Female
  Weight: 99.34 kg

DRUGS (3)
  1. REMICADE [Suspect]
     Dosage: MAINTENANCE TREATMENT FOR APPROXIMATELY 2 YEARS
     Route: 042
     Dates: start: 20040101
  2. TREXALL [Concomitant]
     Indication: PSORIATIC ARTHROPATHY
     Dates: start: 20030501
  3. REMICADE [Suspect]
     Indication: PSORIATIC ARTHROPATHY
     Dosage: 6 VIALS
     Route: 042
     Dates: start: 20060524

REACTIONS (10)
  - PNEUMONIA LEGIONELLA [None]
  - SEPSIS [None]
  - DILATATION VENTRICULAR [None]
  - PLEURAL EFFUSION [None]
  - HEPATIC CONGESTION [None]
  - ARTERIOSCLEROSIS CORONARY ARTERY [None]
  - DIFFUSE ALVEOLAR DAMAGE [None]
  - OBESITY [None]
  - HEPATIC STEATOSIS [None]
  - HAEMATURIA [None]
